FAERS Safety Report 15531968 (Version 2)
Quarter: 2018Q4

REPORT INFORMATION
  Report Type: Spontaneous
  Country: JP (occurrence: JP)
  Receive Date: 20181019
  Receipt Date: 20181102
  Transmission Date: 20190205
  Serious: Yes (Other)
  Sender: FDA-Public Use
  Company Number: JP-TEVA-2018-JP-965224

PATIENT
  Age: 7 Decade
  Sex: Male

DRUGS (6)
  1. RITUXIMAB. [Suspect]
     Active Substance: RITUXIMAB
     Indication: B-CELL LYMPHOMA
     Dosage: 375MG/M2X1/DAY, CYCLIC
     Route: 041
     Dates: start: 20180807
  2. SULFAMETHOXAZOLE AND TRIMETHOPRIM [Suspect]
     Active Substance: SULFAMETHOXAZOLE\TRIMETHOPRIM
     Indication: PRODUCT USED FOR UNKNOWN INDICATION
     Dosage: UNK UNK, UNKNOWN FREQ.
     Route: 065
     Dates: start: 20180809, end: 20180919
  3. BENDAMUSTINE HYDROCHLORIDE. [Suspect]
     Active Substance: BENDAMUSTINE HYDROCHLORIDE
     Dosage: 90MG/M2X1/DAY, CYCLIC (2ND CYCLE)
     Route: 042
     Dates: start: 20180828, end: 20180829
  4. BENDAMUSTINE HYDROCHLORIDE. [Suspect]
     Active Substance: BENDAMUSTINE HYDROCHLORIDE
     Dosage: 90MG/M2X1/DAY, CYCLIC (3RD CYCLE)
     Route: 042
     Dates: start: 20180925, end: 20180926
  5. BENDAMUSTINE HYDROCHLORIDE. [Suspect]
     Active Substance: BENDAMUSTINE HYDROCHLORIDE
     Indication: B-CELL LYMPHOMA
     Dosage: 90MG/M2X1/DAY, CYCLIC (1ST CYCLE)
     Route: 042
     Dates: start: 20180807, end: 20180808
  6. RITUXIMAB. [Suspect]
     Active Substance: RITUXIMAB
     Dosage: 375MG/M2X1/DAY, CYCLIC
     Route: 041
     Dates: start: 20180925

REACTIONS (6)
  - Prescribed underdose [Unknown]
  - Gamma-glutamyltransferase increased [Recovered/Resolved]
  - Blood lactate dehydrogenase increased [Recovered/Resolved]
  - Blood alkaline phosphatase increased [Recovered/Resolved]
  - Aspartate aminotransferase increased [Recovered/Resolved]
  - Alanine aminotransferase increased [Recovered/Resolved]

NARRATIVE: CASE EVENT DATE: 20180807
